FAERS Safety Report 8711145 (Version 2)
Quarter: 2013Q4

REPORT INFORMATION
  Report Type: Spontaneous
  Country: US (occurrence: US)
  Receive Date: 20120807
  Receipt Date: 20131101
  Transmission Date: 20140711
  Serious: No
  Sender: FDA-Public Use
  Company Number: US-009507513-2012SP033547

PATIENT
  Age: 28 Year
  Sex: Male

DRUGS (2)
  1. ASMANEX TWISTHALER [Suspect]
     Indication: OESOPHAGITIS
     Dosage: 1 DF, BID
     Dates: start: 20120608
  2. PRILOSEC [Concomitant]
     Indication: PRODUCT USED FOR UNKNOWN INDICATION

REACTIONS (2)
  - Therapeutic product ineffective [Not Recovered/Not Resolved]
  - Off label use [Not Recovered/Not Resolved]
